FAERS Safety Report 6014315-7 (Version None)
Quarter: 2008Q4

REPORT INFORMATION
  Report Type: 
  Country: None (occurrence: None)
  Receive Date: 20081219
  Receipt Date: 20080410
  Transmission Date: 20090506
  Serious: No
  Sender: FDA-Public Use
  Company Number: A0722153A

PATIENT
  Age: 79 Year
  Sex: Male

DRUGS (2)
  1. AVODART [Suspect]
     Indication: BENIGN PROSTATIC HYPERPLASIA
     Route: 048
     Dates: start: 20080320
  2. NO CONCURRENT MEDICATION [Concomitant]

REACTIONS (3)
  - BURNING SENSATION [None]
  - MICTURITION URGENCY [None]
  - POLLAKIURIA [None]
